FAERS Safety Report 14516884 (Version 2)
Quarter: 2018Q1

REPORT INFORMATION
  Report Type: Spontaneous
  Country: US (occurrence: US)
  Receive Date: 20180212
  Receipt Date: 20180223
  Transmission Date: 20180509
  Serious: Yes (Hospitalization, Other)
  Sender: FDA-Public Use
  Company Number: US-TEVA-2018-US-858846

PATIENT
  Sex: Male

DRUGS (3)
  1. BENDEKA [Suspect]
     Active Substance: BENDAMUSTINE HYDROCHLORIDE
     Dosage: DAYS 1 AND 2 OF HIS FIRST CYCLE
     Dates: start: 20180201
  2. ACYCLOVIR. [Concomitant]
     Active Substance: ACYCLOVIR
  3. RITUXAN [Suspect]
     Active Substance: RITUXIMAB
     Dosage: DAYS 1 AND 2 OF HIS FIRST CYCLE
     Dates: start: 20180201

REACTIONS (6)
  - Rash [Not Recovered/Not Resolved]
  - Generalised erythema [Not Recovered/Not Resolved]
  - Chills [Not Recovered/Not Resolved]
  - Pyrexia [Not Recovered/Not Resolved]
  - Urticaria [Not Recovered/Not Resolved]
  - Tumour lysis syndrome [Unknown]

NARRATIVE: CASE EVENT DATE: 20180201
